FAERS Safety Report 4290588-6 (Version None)
Quarter: 2004Q1

REPORT INFORMATION
  Report Type: 
  Country: None (occurrence: None)
  Receive Date: 20040209
  Receipt Date: 20040127
  Transmission Date: 20041129
  Serious: Yes (Death, Hospitalization)
  Sender: FDA-Public Use
  Company Number: 2004AP00465

PATIENT
  Age: 71 Year
  Sex: Female

DRUGS (1)
  1. TAMOXIFEN [Suspect]
     Indication: BREAST CANCER
     Dosage: 20 MG DAILY

REACTIONS (6)
  - ANAEMIA [None]
  - LEIOMYOSARCOMA [None]
  - METASTASES TO LIVER [None]
  - OVARIAN ADENOMA [None]
  - POSTMENOPAUSAL HAEMORRHAGE [None]
  - UTERINE INVERSION [None]
